FAERS Safety Report 8128325-7 (Version None)
Quarter: 2012Q1

REPORT INFORMATION
  Report Type: 
  Country: None (occurrence: None)
  Receive Date: 20120210
  Receipt Date: 20120208
  Transmission Date: 20120608
  Serious: Yes (Other)
  Sender: FDA-Public Use
  Company Number: US-PFIZER INC-2012034934

PATIENT
  Sex: Female
  Weight: 12.698 kg

DRUGS (6)
  1. GENOTROPIN [Suspect]
     Indication: OFF LABEL USE
     Dosage: 0.4 MG, 1X/DAY
     Route: 058
  2. FISH OIL [Concomitant]
     Dosage: UNK
  3. GENOTROPIN [Suspect]
     Indication: HYPOTONIA
  4. FLINTSTONES MULTIPLE VITAMINS [Concomitant]
     Dosage: UNK
  5. ACETAMINOPHEN [Concomitant]
     Indication: PYREXIA
     Dosage: UNK
  6. ACETAMINOPHEN [Concomitant]
     Indication: SLUGGISHNESS

REACTIONS (3)
  - WEIGHT INCREASED [None]
  - SCOLIOSIS [None]
  - STRABISMUS [None]
